FAERS Safety Report 6321724-5 (Version None)
Quarter: 2009Q3

REPORT INFORMATION
  Report Type: 
  Country: None (occurrence: None)
  Receive Date: 20090821
  Receipt Date: 20090821
  Transmission Date: 20100115
  Serious: No
  Sender: FDA-Public Use
  Company Number: None

PATIENT
  Age: 79 Year
  Sex: Male
  Weight: 77.5651 kg

DRUGS (1)
  1. PENICILLIN VK [Suspect]

REACTIONS (1)
  - BLOOD GLUCOSE INCREASED [None]
